FAERS Safety Report 23484314 (Version 3)
Quarter: 2024Q1

REPORT INFORMATION
  Report Type: Report from Study
  Country: BR (occurrence: BR)
  Receive Date: 20240206
  Receipt Date: 20240219
  Transmission Date: 20240410
  Serious: Yes (Other)
  Sender: FDA-Public Use
  Company Number: BR-TAKEDA-2024TUS009413

PATIENT
  Age: 59 Year
  Sex: Male
  Weight: 80 kg

DRUGS (2)
  1. MARIBAVIR [Suspect]
     Active Substance: MARIBAVIR
     Indication: Neutropenia
     Dosage: UNK
     Route: 065
     Dates: start: 20231208, end: 20240105
  2. GANCICLOVIR [Suspect]
     Active Substance: GANCICLOVIR
     Indication: Product used for unknown indication
     Dosage: UNK
     Route: 065

REACTIONS (6)
  - Transplant rejection [Unknown]
  - Neutropenia [Unknown]
  - Renal tubular necrosis [Unknown]
  - Thrombotic microangiopathy [Unknown]
  - Renal transplant failure [Unknown]
  - Refractoriness to platelet transfusion [Unknown]
